FAERS Safety Report 9089061 (Version 1)
Quarter: 2013Q1

REPORT INFORMATION
  Report Type: Report from Study
  Country: DE (occurrence: DE)
  Receive Date: 20130201
  Receipt Date: 20130201
  Transmission Date: 20140127
  Serious: Yes (Death, Other)
  Sender: FDA-Public Use
  Company Number: DE-PFIZER INC-2013034118

PATIENT
  Age: 67 Year
  Sex: Male

DRUGS (3)
  1. CYTARABINE [Suspect]
     Indication: ACUTE MYELOID LEUKAEMIA
     Dosage: 100 MG/M2 (ON DAYS 1-7)
     Route: 042
  2. DAUNORUBICIN HCL [Suspect]
     Indication: ACUTE MYELOID LEUKAEMIA
     Dosage: 45 MG/M2(ON DAYS 3-5)
     Route: 042
  3. AZACITIDINE [Suspect]
     Indication: ACUTE MYELOID LEUKAEMIA
     Dosage: 37.5 MG/M2, UNK
     Route: 042

REACTIONS (2)
  - Hepatorenal syndrome [Fatal]
  - Hyperbilirubinaemia [Not Recovered/Not Resolved]
